FAERS Safety Report 23496554 (Version 1)
Quarter: 2024Q1

REPORT INFORMATION
  Report Type: Spontaneous
  Country: US (occurrence: US)
  Receive Date: 20240208
  Receipt Date: 20240208
  Transmission Date: 20240409
  Serious: No
  Sender: FDA-Public Use
  Company Number: US-AMGEN-USASP2024024390

PATIENT
  Age: 64 Year
  Sex: Female

DRUGS (3)
  1. REPATHA [Suspect]
     Active Substance: EVOLOCUMAB
     Indication: Blood cholesterol abnormal
     Dosage: 140 MILLIGRAM, Q2WK
     Route: 065
     Dates: start: 20240128
  2. REPATHA [Suspect]
     Active Substance: EVOLOCUMAB
     Indication: Prophylaxis
  3. SAFE TUSSIN [Concomitant]
     Indication: Hypersensitivity

REACTIONS (3)
  - Headache [Not Recovered/Not Resolved]
  - Muscle spasms [Recovered/Resolved]
  - Head discomfort [Not Recovered/Not Resolved]

NARRATIVE: CASE EVENT DATE: 20240128
